FAERS Safety Report 15027359 (Version 3)
Quarter: 2018Q3

REPORT INFORMATION
  Report Type: Spontaneous
  Country: US (occurrence: US)
  Receive Date: 20180619
  Receipt Date: 20180829
  Transmission Date: 20181010
  Serious: Yes (Death, Hospitalization, Other)
  Sender: FDA-Public Use
  Company Number: US-AMGEN-USASP2018082237

PATIENT
  Age: 55 Year
  Sex: Female
  Weight: 121.1 kg

DRUGS (1)
  1. NEULASTA [Suspect]
     Active Substance: PEGFILGRASTIM
     Indication: PRODUCT USED FOR UNKNOWN INDICATION
     Dosage: 6 MG, AFTER CHEMO
     Route: 058

REACTIONS (3)
  - Transfusion [Unknown]
  - Unintentional medical device removal [Unknown]
  - Death [Fatal]

NARRATIVE: CASE EVENT DATE: 2018
